FAERS Safety Report 12124454 (Version 2)
Quarter: 2016Q1

REPORT INFORMATION
  Report Type: Report from Study
  Country: US (occurrence: US)
  Receive Date: 20160229
  Receipt Date: 20160318
  Transmission Date: 20160526
  Serious: No
  Sender: FDA-Public Use
  Company Number: US-AMGEN-USASL2016020938

PATIENT
  Age: 22 Year
  Sex: Male

DRUGS (1)
  1. ENBREL [Suspect]
     Active Substance: ETANERCEPT
     Indication: PSORIASIS
     Dosage: 50 MG, QWK
     Route: 065
     Dates: start: 20160202

REACTIONS (5)
  - Cough [Unknown]
  - Diarrhoea [Recovering/Resolving]
  - Pyrexia [Unknown]
  - Hyperhidrosis [Unknown]
  - Chills [Unknown]

NARRATIVE: CASE EVENT DATE: 201602
